FAERS Safety Report 16149971 (Version 2)
Quarter: 2020Q1

REPORT INFORMATION
  Report Type: Spontaneous
  Country: DE (occurrence: DE)
  Receive Date: 20190402
  Receipt Date: 20200214
  Transmission Date: 20200409
  Serious: Yes (Other)
  Sender: FDA-Public Use
  Company Number: PHHY2019DE070357

PATIENT
  Age: 79 Year
  Sex: Female
  Weight: 62 kg

DRUGS (18)
  1. DEXAMETHASONE. [Suspect]
     Active Substance: DEXAMETHASONE
     Indication: PLASMA CELL MYELOMA
     Dosage: 20 MG
     Route: 065
     Dates: start: 201303, end: 201508
  2. EPOETIN ZETA [Concomitant]
     Active Substance: ERYTHROPOIETIN
     Indication: ANAEMIA
     Dosage: 3000IU
     Route: 058
     Dates: start: 20151118
  3. BROMAZEPAM RATIOPHARM [Concomitant]
     Indication: DISTURBANCE IN ATTENTION
     Dosage: 6 MG, QD
     Route: 048
     Dates: start: 2012
  4. DEXAMETHASONE. [Suspect]
     Active Substance: DEXAMETHASONE
     Dosage: 20 MG, UNK
     Route: 065
     Dates: start: 20151014, end: 20151104
  5. REVLIMID [Suspect]
     Active Substance: LENALIDOMIDE
     Indication: PLASMA CELL MYELOMA
     Dosage: UNK
     Route: 048
     Dates: start: 201303, end: 201508
  6. POMALIDOMIDE [Suspect]
     Active Substance: POMALIDOMIDE
     Dosage: 3 MG
     Route: 048
     Dates: start: 20151119, end: 20160223
  7. KATADOLON [Concomitant]
     Active Substance: FLUPIRTINE
     Indication: PAIN
     Dosage: 5 MG, QD
     Route: 048
  8. TORASEMID BETA [Concomitant]
     Indication: OEDEMA
     Dosage: 10 MG
     Route: 048
     Dates: start: 20160518
  9. DARATUMUMAB [Concomitant]
     Active Substance: DARATUMUMAB
     Indication: PRODUCT USED FOR UNKNOWN INDICATION
     Dosage: UNK
     Route: 065
     Dates: start: 20160802, end: 20161130
  10. DEKRISTOL [Concomitant]
     Active Substance: CHOLECALCIFEROL
     Indication: OSTEOPOROSIS
     Dosage: 2000 IU, QW
     Route: 048
     Dates: start: 2010
  11. SIMVASTATIN-RATIOPHARM [Concomitant]
     Active Substance: SIMVASTATIN
     Indication: BODY FAT DISORDER
     Dosage: 5 MG, QD
     Route: 048
     Dates: start: 2002
  12. OMEPRAZOLE. [Concomitant]
     Active Substance: OMEPRAZOLE
     Indication: PROPHYLAXIS
     Dosage: 40 MG, QW
     Route: 065
     Dates: start: 201302
  13. DEXAMETHASONE. [Suspect]
     Active Substance: DEXAMETHASONE
     Dosage: 20 MG
     Route: 048
     Dates: start: 20151118, end: 20160615
  14. ELIQUIS [Concomitant]
     Active Substance: APIXABAN
     Indication: ATRIAL FIBRILLATION
     Dosage: 2.5 MG, QD (5 MG)
     Route: 048
     Dates: start: 2012
  15. BROMAZEPAM RATIOPHARM [Concomitant]
     Indication: INITIAL INSOMNIA
  16. POMALIDOMIDE [Suspect]
     Active Substance: POMALIDOMIDE
     Indication: PLASMA CELL MYELOMA
     Dosage: 4 MG, UNK
     Route: 048
     Dates: start: 20151014, end: 20151103
  17. PANTOPRAZOL RATIOPHARM [Concomitant]
     Active Substance: PANTOPRAZOLE SODIUM
     Indication: PROPHYLAXIS
     Dosage: 20 MG, QD
     Route: 048
  18. ZOMETA [Concomitant]
     Active Substance: ZOLEDRONIC ACID
     Indication: OSTEOLYSIS
     Dosage: 4 MG, QMO
     Route: 041
     Dates: start: 20110304

REACTIONS (1)
  - Acute myeloid leukaemia [Not Recovered/Not Resolved]

NARRATIVE: CASE EVENT DATE: 20161130
